FAERS Safety Report 6910880-3 (Version None)
Quarter: 2010Q3

REPORT INFORMATION
  Report Type: 
  Country: None (occurrence: None)
  Receive Date: 20100806
  Receipt Date: 20100804
  Transmission Date: 20110219
  Serious: Yes (Hospitalization)
  Sender: FDA-Public Use
  Company Number: US-NAPPMUNDI-USA-2010-0044370

PATIENT
  Sex: Male

DRUGS (3)
  1. OXYCONTIN [Suspect]
     Indication: PAIN
     Dosage: UNK MG, SEE TEXT
     Dates: start: 20070101
  2. OXYCONTIN [Suspect]
     Dosage: 40 MG, BID
     Dates: start: 20070101
  3. PERCOCET [Suspect]
     Indication: PAIN
     Dosage: UNK MG, SEE TEXT

REACTIONS (6)
  - CONFUSIONAL STATE [None]
  - DIARRHOEA [None]
  - DRUG WITHDRAWAL SYNDROME [None]
  - HOT FLUSH [None]
  - MULTIPLE DRUG OVERDOSE [None]
  - RENAL FAILURE ACUTE [None]
